FAERS Safety Report 5982393-7 (Version None)
Quarter: 2008Q4

REPORT INFORMATION
  Report Type: 
  Country: None (occurrence: None)
  Receive Date: 20081208
  Receipt Date: 20081126
  Transmission Date: 20090506
  Serious: Yes (Hospitalization)
  Sender: FDA-Public Use
  Company Number: BR-BIOGENIDEC-2008BI029746

PATIENT
  Age: 61 Year
  Sex: Female

DRUGS (6)
  1. AVONEX [Suspect]
     Indication: MULTIPLE SCLEROSIS
     Route: 030
     Dates: start: 20040101
  2. OXIBUTININE [Concomitant]
     Indication: URINARY TRACT DISORDER
  3. STATINS [Concomitant]
     Indication: BLOOD CHOLESTEROL
  4. BACLOFEN [Concomitant]
     Indication: MYALGIA
  5. ANTIDEPRESSANT NOS [Concomitant]
  6. ANTIHYPERTENSIVE NOS [Concomitant]
     Indication: HYPERTENSION

REACTIONS (4)
  - ANAEMIA [None]
  - ASTHENIA [None]
  - FALL [None]
  - SKELETAL INJURY [None]
